FAERS Safety Report 22030801 (Version 1)
Quarter: 2023Q1

REPORT INFORMATION
  Report Type: Spontaneous
  Country: GB (occurrence: GB)
  Receive Date: 20230223
  Receipt Date: 20230223
  Transmission Date: 20230418
  Serious: Yes (Other)
  Sender: FDA-Public Use
  Company Number: None

PATIENT
  Age: 41 Year
  Sex: Female

DRUGS (6)
  1. PIPERACILLIN SODIUM\TAZOBACTAM SODIUM [Suspect]
     Active Substance: PIPERACILLIN SODIUM\TAZOBACTAM SODIUM
     Dosage: UNK
  2. FLUCLOXACILLIN [Suspect]
     Active Substance: FLUCLOXACILLIN
     Dosage: UNK
  3. PREDNISOLONE [Concomitant]
     Active Substance: PREDNISOLONE
     Dosage: 30 MG, 1X/DAY
     Dates: start: 20221130
  4. SPIRONOLACTONE [Concomitant]
     Active Substance: SPIRONOLACTONE
     Indication: Hirsutism
     Dosage: 25 MG, 1X/DAY, MORNING
  5. BETNOVATE [Concomitant]
     Active Substance: BETAMETHASONE
     Dosage: RD 0.025% OINTMENT
  6. PARAFFIN [Concomitant]
     Active Substance: PARAFFIN
     Dosage: WHITE SOFT PARAFFIN+LIQUID PARAFFIN 50/50%

REACTIONS (3)
  - Acute generalised exanthematous pustulosis [Recovered/Resolved]
  - Blister [Recovered/Resolved]
  - Rash [Recovered/Resolved]

NARRATIVE: CASE EVENT DATE: 20221214
